FAERS Safety Report 10684525 (Version 3)
Quarter: 2015Q2

REPORT INFORMATION
  Report Type: Spontaneous
  Country: GB (occurrence: GB)
  Receive Date: 20141231
  Receipt Date: 20150519
  Transmission Date: 20150821
  Serious: Yes (Death, Hospitalization, Other)
  Sender: FDA-Public Use
  Company Number: PHFR2014GB009079

PATIENT
  Age: 43 Year
  Sex: Female
  Weight: 77.4 kg

DRUGS (25)
  1. CLOZARIL [Suspect]
     Active Substance: CLOZAPINE
     Dosage: 450 MG, QD
     Route: 048
     Dates: start: 20010701
  2. CLOZARIL [Suspect]
     Active Substance: CLOZAPINE
     Dosage: 700 MG, QD (200 MG AT 10 AM AND 500 MG AT 8 PM)
     Route: 048
  3. SODIUM VALPROATE [Concomitant]
     Active Substance: VALPROATE SODIUM
     Indication: EPILEPSY
     Dosage: 200 MG, BID
     Route: 048
     Dates: start: 20070426
  4. CLOZARIL [Suspect]
     Active Substance: CLOZAPINE
     Dosage: 450 MG
     Route: 048
  5. CLOZARIL [Suspect]
     Active Substance: CLOZAPINE
     Dosage: UNK
     Route: 048
  6. CLOZARIL [Suspect]
     Active Substance: CLOZAPINE
     Dosage: 600 MG, QD (200 MG IN AM AND 400 MG IN PM)
     Route: 048
  7. HYOSCINE HYDROBROMIDE [Concomitant]
     Active Substance: SCOPOLAMINE
     Indication: SCHIZOPHRENIA
     Dosage: 150 UG, BID
     Route: 065
     Dates: start: 20050331
  8. FLUOXETINE [Concomitant]
     Active Substance: FLUOXETINE\FLUOXETINE HYDROCHLORIDE
     Indication: SCHIZOPHRENIA
     Dosage: 20 MG, QD
     Route: 065
  9. FYBOGEL [Concomitant]
     Active Substance: PLANTAGO OVATA SEED
     Indication: PRODUCT USED FOR UNKNOWN INDICATION
     Dosage: 2 UNK, QD (1-2 SACHET EACH DAY)
     Route: 065
  10. ZOPICLONE [Concomitant]
     Active Substance: ZOPICLONE
     Indication: SCHIZOPHRENIA
     Dosage: 1 DF, QHS
     Route: 065
  11. GLYCERIN SUPPOSITORIES [Concomitant]
     Indication: CONSTIPATION
     Route: 065
  12. SODIUM VALPROATE [Concomitant]
     Active Substance: VALPROATE SODIUM
     Dosage: 200 MG, BIW
     Route: 065
     Dates: start: 20141209
  13. CLOZARIL [Suspect]
     Active Substance: CLOZAPINE
     Dosage: DOSE WAS REDUCED
     Route: 048
     Dates: start: 20121017
  14. MOMETASONE [Concomitant]
     Active Substance: MOMETASONE
     Indication: PRODUCT USED FOR UNKNOWN INDICATION
     Dosage: 1 DF, QD
     Route: 065
     Dates: start: 20141209
  15. SODIUM VALPROATE [Concomitant]
     Active Substance: VALPROATE SODIUM
     Dosage: 250 MG, QD
     Route: 048
     Dates: start: 2012
  16. CLOZARIL [Suspect]
     Active Substance: CLOZAPINE
     Dosage: 450 MG, QD (150 MG BD AND 300 MG IN NIGHT)
     Route: 048
     Dates: start: 20041216
  17. CLOZARIL [Suspect]
     Active Substance: CLOZAPINE
     Dosage: 700 MG, QD (200 MG IN AM AND 150 MG IN NOON AND 350 MG IN NIGHT)
     Route: 048
     Dates: start: 20080221
  18. CLOZARIL [Suspect]
     Active Substance: CLOZAPINE
     Dosage: 450 MG, QD (200 MG IN AM AND 250 MG IN NIGHT)
     Route: 048
  19. NIZORAL [Concomitant]
     Active Substance: KETOCONAZOLE
     Indication: PRODUCT USED FOR UNKNOWN INDICATION
     Dosage: 240 ML, UNK
     Route: 065
     Dates: start: 20141209
  20. CANESTEN [Concomitant]
     Active Substance: CLOTRIMAZOLE
     Indication: PRODUCT USED FOR UNKNOWN INDICATION
     Dosage: UNK UNK, BID
     Route: 065
  21. CLOZARIL [Suspect]
     Active Substance: CLOZAPINE
     Indication: SCHIZOPHRENIA
     Dosage: 25 MG, BID
     Route: 048
     Dates: start: 20010512
  22. CLOZARIL [Suspect]
     Active Substance: CLOZAPINE
     Dosage: 500 MG, QD (150 MG IN AM AND 350 MG IN NIGHT)
     Route: 048
     Dates: start: 20060315
  23. HYOSCINE HYDROBROMIDE [Concomitant]
     Active Substance: SCOPOLAMINE
     Dosage: 150 UG, TID
     Route: 065
  24. SUDOCREM [Concomitant]
     Indication: PRODUCT USED FOR UNKNOWN INDICATION
     Route: 065
  25. HYDROCORTISONE W/MICONAZOLE [Concomitant]
     Indication: PRODUCT USED FOR UNKNOWN INDICATION
     Route: 065

REACTIONS (51)
  - Depressed mood [Unknown]
  - Sleep disorder [Unknown]
  - Dyskinesia [Unknown]
  - Confusional state [Unknown]
  - Sedation [Unknown]
  - Epilepsy [Unknown]
  - Mental impairment [Recovering/Resolving]
  - Malaise [Unknown]
  - General physical health deterioration [Unknown]
  - Blood sodium increased [Not Recovered/Not Resolved]
  - Encopresis [Unknown]
  - Condition aggravated [Unknown]
  - Nasal septum deviation [Unknown]
  - Blood triglycerides increased [Not Recovered/Not Resolved]
  - Hyperlipidaemia [Unknown]
  - Mean cell haemoglobin concentration decreased [Not Recovered/Not Resolved]
  - Stress [Unknown]
  - Spinal osteoarthritis [Unknown]
  - Anxiety [Unknown]
  - Cognitive disorder [Unknown]
  - Gait disturbance [Unknown]
  - Blood albumin increased [Unknown]
  - Nasal congestion [Unknown]
  - Blood cholesterol increased [Unknown]
  - Body mass index increased [Not Recovered/Not Resolved]
  - Intervertebral disc space narrowing [Unknown]
  - Anger [Unknown]
  - Generalised tonic-clonic seizure [Unknown]
  - Suicidal ideation [Unknown]
  - Hallucination [Unknown]
  - Hostility [Unknown]
  - Pharyngitis [Unknown]
  - Neck pain [Unknown]
  - Kyphosis [Unknown]
  - Electroencephalogram abnormal [Unknown]
  - Salivary hypersecretion [Not Recovered/Not Resolved]
  - Aggression [Unknown]
  - Irritability [Unknown]
  - Spinal pain [Unknown]
  - Muscle twitching [Unknown]
  - Death [Fatal]
  - Delusion [Unknown]
  - Diabetes mellitus [Unknown]
  - Agitation [Unknown]
  - Muscular weakness [Unknown]
  - Trance [Unknown]
  - Fall [Unknown]
  - Tremor [Unknown]
  - High density lipoprotein decreased [Not Recovered/Not Resolved]
  - Constipation [Unknown]
  - Antipsychotic drug level above therapeutic [Unknown]

NARRATIVE: CASE EVENT DATE: 20031201
